FAERS Safety Report 16579967 (Version 2)
Quarter: 2020Q3

REPORT INFORMATION
  Report Type: Spontaneous
  Country: US (occurrence: US)
  Receive Date: 20190716
  Receipt Date: 20200805
  Transmission Date: 20201102
  Serious: Yes (Hospitalization)
  Sender: FDA-Public Use
  Company Number: US-JNJFOC-20190705184

PATIENT
  Age: 64 Year
  Sex: Female

DRUGS (1)
  1. INVOKANA [Suspect]
     Active Substance: CANAGLIFLOZIN
     Indication: PRODUCT USED FOR UNKNOWN INDICATION
     Route: 048

REACTIONS (5)
  - Wound [Unknown]
  - Cellulitis [Unknown]
  - Osteomyelitis [Unknown]
  - Skin ulcer [Unknown]
  - Limb amputation [Unknown]

NARRATIVE: CASE EVENT DATE: 20151118
